FAERS Safety Report 9207603 (Version 3)
Quarter: 2014Q2

REPORT INFORMATION
  Report Type: Spontaneous
  Country: US (occurrence: US)
  Receive Date: 20130403
  Receipt Date: 20140422
  Transmission Date: 20141212
  Serious: Yes (Hospitalization, Other)
  Sender: FDA-Public Use
  Company Number: US-BAYER-2013-041852

PATIENT
  Age: 35 Year
  Sex: Female
  Weight: 97.51 kg

DRUGS (6)
  1. MIRENA [Suspect]
     Indication: CONTRACEPTION
     Dosage: 20 MCG/24HR, CONT
     Route: 015
     Dates: start: 20110328, end: 20120713
  2. MORPHINE [Concomitant]
  3. ZOFRAN [Concomitant]
  4. PERCOCET [Concomitant]
  5. LAMICTAL [Concomitant]
     Indication: BIPOLAR DISORDER
     Dosage: 200 MG, UNK
     Route: 048
  6. ADDERALL [Concomitant]
     Indication: ATTENTION DEFICIT/HYPERACTIVITY DISORDER
     Dosage: 20 MG, UNK
     Route: 048

REACTIONS (5)
  - Embedded device [None]
  - Genital haemorrhage [None]
  - Injury [None]
  - Pain [None]
  - Emotional distress [None]
